FAERS Safety Report 7075138-3 (Version None)
Quarter: 2010Q4

REPORT INFORMATION
  Report Type: 
  Country: None (occurrence: None)
  Receive Date: 20101029
  Receipt Date: 20100524
  Transmission Date: 20110411
  Serious: No
  Sender: FDA-Public Use
  Company Number: US-WYE-H15000610

PATIENT
  Age: 77 Year
  Sex: Female
  Weight: 50.85 kg

DRUGS (2)
  1. ADVIL PM [Suspect]
     Indication: PAIN
     Dosage: 2 CAPLETS ONCE
     Route: 048
     Dates: start: 20100429, end: 20100429
  2. ADVIL PM [Suspect]
     Indication: INSOMNIA

REACTIONS (3)
  - AGITATION [None]
  - DRUG INEFFECTIVE [None]
  - RESTLESSNESS [None]
